FAERS Safety Report 19670819 (Version 1)
Quarter: 2021Q3

REPORT INFORMATION
  Report Type: Spontaneous
  Country: CN (occurrence: CN)
  Receive Date: 20210806
  Receipt Date: 20210806
  Transmission Date: 20211014
  Serious: Yes (Hospitalization)
  Sender: FDA-Public Use
  Company Number: CN-ELI_LILLY_AND_COMPANY-CN202107011297

PATIENT
  Age: 52 Year
  Sex: Female

DRUGS (2)
  1. DULAGLUTIDE 1.5MG [Suspect]
     Active Substance: DULAGLUTIDE
     Indication: DIABETES MELLITUS
     Dosage: 1.5 MG, SINGLE
     Route: 058
     Dates: start: 20210713, end: 20210713
  2. GLUCOSE [Suspect]
     Active Substance: DEXTROSE
     Indication: PRODUCT USED FOR UNKNOWN INDICATION
     Dosage: 40 ML, UNKNOWN
     Route: 042

REACTIONS (6)
  - Hyperhidrosis [Recovering/Resolving]
  - Gastrointestinal disorder [Recovering/Resolving]
  - Supraventricular tachycardia [Recovering/Resolving]
  - Nausea [Recovering/Resolving]
  - Asthenia [Recovering/Resolving]
  - Palpitations [Recovering/Resolving]

NARRATIVE: CASE EVENT DATE: 20210713
